FAERS Safety Report 5005796-6 (Version None)
Quarter: 2006Q2

REPORT INFORMATION
  Report Type: 
  Country: None (occurrence: None)
  Receive Date: 20060516
  Receipt Date: 20060501
  Transmission Date: 20061013
  Serious: Yes (Other)
  Sender: FDA-Public Use
  Company Number: US200605000457

PATIENT
  Age: 55 Year
  Sex: Female

DRUGS (10)
  1. CYMBALTA [Suspect]
     Indication: ARTHRITIS
     Dosage: 30 + 60 MG - SEE IMAGE
     Dates: start: 20040101
  2. PREDNISONE TAB [Concomitant]
  3. FOSAMAX [Concomitant]
  4. ACIPHEX [Concomitant]
  5. MULTIVITAMIN ^LAPPE^ (VITAMINS NOS) [Concomitant]
  6. VITAMIN D [Concomitant]
  7. CALCIUM (CALCIUM) [Concomitant]
  8. NEURONTIN [Concomitant]
  9. LOPRESSOR [Concomitant]
  10. PREMARIN [Concomitant]

REACTIONS (6)
  - AMNESIA [None]
  - CHEST PAIN [None]
  - DIZZINESS [None]
  - EYE HAEMORRHAGE [None]
  - HEPATIC STEATOSIS [None]
  - RETINAL VEIN OCCLUSION [None]
